FAERS Safety Report 10472491 (Version 1)
Quarter: 2014Q3

REPORT INFORMATION
  Report Type: Spontaneous
  Country: US (occurrence: None)
  Receive Date: 20140923
  Receipt Date: 20140923
  Transmission Date: 20150326
  Serious: Yes (Other)
  Sender: FDA-Public Use
  Company Number: None

PATIENT
  Age: 52 Year
  Sex: Female
  Weight: 72.58 kg

DRUGS (1)
  1. PROLIA [Suspect]
     Active Substance: DENOSUMAB
     Indication: OSTEOPOROSIS
     Dates: start: 20140915

REACTIONS (5)
  - Food aversion [None]
  - Mouth ulceration [None]
  - Dysgeusia [None]
  - Parosmia [None]
  - Oropharyngeal pain [None]

NARRATIVE: CASE EVENT DATE: 20140915
